FAERS Safety Report 9517919 (Version 1)
Quarter: 2013Q3

REPORT INFORMATION
  Report Type: Spontaneous
  Country: US (occurrence: None)
  Receive Date: 20130910
  Receipt Date: 20130910
  Transmission Date: 20140515
  Serious: Yes (Hospitalization, Other)
  Sender: FDA-Public Use
  Company Number: None

PATIENT
  Age: 17 Year
  Sex: Male
  Weight: 79.38 kg

DRUGS (1)
  1. LORATIDINE [Suspect]
     Indication: MULTIPLE ALLERGIES
     Dates: start: 20130129, end: 20130329

REACTIONS (2)
  - Convulsion [None]
  - Convulsion [None]
